FAERS Safety Report 17042490 (Version 3)
Quarter: 2019Q4

REPORT INFORMATION
  Report Type: Spontaneous
  Country: JP (occurrence: JP)
  Receive Date: 20191118
  Receipt Date: 20191217
  Transmission Date: 20200122
  Serious: Yes (Other)
  Sender: FDA-Public Use
  Company Number: JP-TEVA-2019-JP-1139980

PATIENT
  Age: 55 Year
  Sex: Male

DRUGS (13)
  1. CINAL [Concomitant]
     Active Substance: ASCORBIC ACID\CALCIUM PANTOTHENATE
  2. NOURIAST [Concomitant]
     Active Substance: ISTRADEFYLLINE
  3. COMTAN [Concomitant]
     Active Substance: ENTACAPONE
  4. REQUIP [Concomitant]
     Active Substance: ROPINIROLE HYDROCHLORIDE
  5. VOLTAREN [Concomitant]
     Active Substance: DICLOFENAC SODIUM
  6. LOTRIGA [Concomitant]
     Active Substance: OMEGA-3-ACID ETHYL ESTERS
  7. NEODOPASTON [Concomitant]
     Active Substance: CARBIDOPA\LEVODOPA
  8. AZILECT [Suspect]
     Active Substance: RASAGILINE MESYLATE
     Indication: PARKINSON^S DISEASE
     Dosage: .5 MILLIGRAM DAILY;
     Route: 048
     Dates: start: 20190629, end: 20190927
  9. TRERIEF [Concomitant]
     Active Substance: ZONISAMIDE
  10. LANDSEN [Concomitant]
     Active Substance: CLONAZEPAM
  11. AMITIZA [Concomitant]
     Active Substance: LUBIPROSTONE
  12. ALINAMIN F [Concomitant]
     Active Substance: FURSULTIAMINE HYDROCHLORIDE
  13. ALOSENN [Concomitant]

REACTIONS (4)
  - Renal impairment [Recovered/Resolved]
  - Face oedema [Recovering/Resolving]
  - C-reactive protein increased [Unknown]
  - Pyrexia [Recovered/Resolved]

NARRATIVE: CASE EVENT DATE: 20190702
